FAERS Safety Report 4644893-1 (Version None)
Quarter: 2005Q2

REPORT INFORMATION
  Report Type: 
  Country: None (occurrence: None)
  Receive Date: 20050426
  Receipt Date: 20050412
  Transmission Date: 20051028
  Serious: Yes (Other)
  Sender: FDA-Public Use
  Company Number: HQWYE012913APR05

PATIENT
  Sex: Female

DRUGS (5)
  1. ENBREL [Suspect]
     Indication: DRUG USE FOR UNKNOWN INDICATION
     Dosage: NOT PROVIDED
     Dates: start: 20041130, end: 20050225
  2. ENBREL [Suspect]
     Dosage: NOT PROVIDED
  3. ENBREL [Suspect]
     Dosage: NOT PROVIDED
     Dates: end: 20050225
  4. METHOTREXATE [Concomitant]
     Dosage: NOT PROVIDED
  5. FLUOXETINE [Concomitant]
     Dosage: NOT PROVIDED

REACTIONS (2)
  - HEPATIC ENZYME INCREASED [None]
  - INFLUENZA [None]
